FAERS Safety Report 13299211 (Version 1)
Quarter: 2017Q1

REPORT INFORMATION
  Report Type: Spontaneous
  Country: AR (occurrence: AR)
  Receive Date: 20170306
  Receipt Date: 20170306
  Transmission Date: 20170428
  Serious: Yes (Death)
  Sender: FDA-Public Use
  Company Number: AR-PFIZER INC-2017095924

PATIENT
  Age: 62 Year
  Sex: Female

DRUGS (1)
  1. IBRANCE [Suspect]
     Active Substance: PALBOCICLIB
     Indication: BREAST CANCER METASTATIC
     Dosage: 125 MG, CYCLIC SCHEME 3X1
     Dates: start: 20161111

REACTIONS (1)
  - Death [Fatal]

NARRATIVE: CASE EVENT DATE: 20170224
